FAERS Safety Report 5330946-1 (Version None)
Quarter: 2007Q2

REPORT INFORMATION
  Report Type: 
  Country: None (occurrence: None)
  Receive Date: 20070522
  Receipt Date: 20070326
  Transmission Date: 20071010
  Serious: Yes (Other)
  Sender: FDA-Public Use
  Company Number: US-NOVOPROD-259308

PATIENT
  Sex: Female

DRUGS (7)
  1. VAGIFEM [Suspect]
     Indication: MENOPAUSAL SYMPTOMS
     Route: 067
  2. CENESTIN [Suspect]
     Indication: MENOPAUSAL SYMPTOMS
  3. PROMETRIUM [Suspect]
     Indication: MENOPAUSAL SYMPTOMS
  4. ESTRATEST [Suspect]
     Indication: MENOPAUSAL SYMPTOMS
  5. ESTRING [Suspect]
     Indication: MENOPAUSAL SYMPTOMS
  6. FEMRING [Suspect]
     Indication: MENOPAUSAL SYMPTOMS
  7. MENEST [Suspect]
     Indication: MENOPAUSAL SYMPTOMS

REACTIONS (1)
  - BREAST CANCER [None]
